FAERS Safety Report 9410011 (Version 4)
Quarter: 2013Q4

REPORT INFORMATION
  Report Type: Report from Study
  Country: GB (occurrence: GB)
  Receive Date: 20130719
  Receipt Date: 20131030
  Transmission Date: 20140711
  Serious: Yes (Hospitalization)
  Sender: FDA-Public Use
  Company Number: GB-PFIZER INC-2013203306

PATIENT
  Age: 38 Year
  Sex: Female
  Weight: 72.2 kg

DRUGS (12)
  1. AXITINIB [Suspect]
     Indication: ANGIOSARCOMA
     Dosage: 5 MG, 2X/DAY
     Dates: start: 20130606
  2. ORAMORPH [Concomitant]
     Dosage: 15 MG, EVERY HOUR PRN
     Route: 048
  3. FENTANYL [Concomitant]
     Dosage: 25 UG, 1 PATCH EVERY 72 HOURS
     Route: 062
  4. GLYCERIN [Concomitant]
     Dosage: 4 G, 1 EACH MORNING AND PRN MAX BD
  5. METOCLOPRAMIDE [Concomitant]
     Dosage: 20 MG, 2X/DAY
  6. HYOSCINE BUTYLBROMIDE [Concomitant]
     Dosage: 10 MG, 2 UP TO QDS PRN
  7. PARACETAMOL [Concomitant]
     Dosage: 500 MG, 2 UP TO QDS PRN
  8. CITALOPRAM [Concomitant]
     Dosage: 40 MG, 1X/DAY (IN THE MORNING)
  9. LANSOPRAZOLE [Concomitant]
     Dosage: 30 MG, 1X/DAY (IN THE MORNING)
  10. LAXIDO [Concomitant]
     Dosage: 2 DF, 2X/DAY
  11. BISACODYL [Concomitant]
     Dosage: 10 MG, 1X/DAY (IN THE MORNING)
  12. MST [Concomitant]

REACTIONS (1)
  - Flank pain [Recovered/Resolved]
